FAERS Safety Report 20605062 (Version 2)
Quarter: 2022Q1

REPORT INFORMATION
  Report Type: Spontaneous
  Country: DE (occurrence: DE)
  Receive Date: 20220317
  Receipt Date: 20220331
  Transmission Date: 20220423
  Serious: Yes (Hospitalization)
  Sender: FDA-Public Use
  Company Number: DE-TEVA-2022-DE-2016747

PATIENT
  Age: 58 Year
  Sex: Male

DRUGS (3)
  1. CYCLOSPORINE [Suspect]
     Active Substance: CYCLOSPORINE
     Indication: Pyoderma gangrenosum
     Dosage: 5 MG/KG DAILY;
     Route: 065
  2. CYCLOSPORINE [Suspect]
     Active Substance: CYCLOSPORINE
     Route: 065
  3. METHYLPREDNISOLONE [Suspect]
     Active Substance: METHYLPREDNISOLONE
     Indication: Pyoderma gangrenosum
     Dosage: 1 MG/KG DAILY;
     Route: 065

REACTIONS (1)
  - COVID-19 [Recovering/Resolving]
